FAERS Safety Report 5522372-7 (Version None)
Quarter: 2007Q4

REPORT INFORMATION
  Report Type: 
  Country: None (occurrence: None)
  Receive Date: 20071120
  Receipt Date: 20071112
  Transmission Date: 20080405
  Serious: Yes (Other)
  Sender: FDA-Public Use
  Company Number: ES-PFIZER INC-2007095937

PATIENT
  Age: 43 Year
  Sex: Male

DRUGS (6)
  1. LYRICA [Suspect]
     Indication: NEURALGIA
     Dosage: DAILY DOSE:450MG
     Route: 048
  2. ADOLONTA [Concomitant]
  3. DIAZEPAM [Concomitant]
  4. STILNOX [Concomitant]
  5. PRISDAL [Concomitant]
  6. DEPRELIO [Concomitant]

REACTIONS (3)
  - DYSURIA [None]
  - RENAL PAIN [None]
  - URINARY TRACT INFECTION [None]
